FAERS Safety Report 6722576-1 (Version None)
Quarter: 2010Q2

REPORT INFORMATION
  Report Type: 
  Country: None (occurrence: None)
  Receive Date: 20100506
  Receipt Date: 20100115
  Transmission Date: 20101027
  Serious: Yes (Hospitalization)
  Sender: FDA-Public Use
  Company Number: WAES 1001USA01600

PATIENT
  Age: 75 Year
  Sex: Male

DRUGS (4)
  1. JANUMET [Suspect]
     Indication: DIABETES MELLITUS
     Dosage: PO
     Route: 048
     Dates: start: 20090701, end: 20091201
  2. DIOVAN [Concomitant]
  3. ASPIRIN [Concomitant]
  4. SATIN (UNSPECIFIED) [Concomitant]

REACTIONS (1)
  - PANCREATITIS [None]
